FAERS Safety Report 10076693 (Version 2)
Quarter: 2014Q2

REPORT INFORMATION
  Report Type: Spontaneous
  Country: US (occurrence: US)
  Receive Date: 20140414
  Receipt Date: 20140512
  Transmission Date: 20141212
  Serious: Yes (Death, Life-Threatening, Hospitalization)
  Sender: FDA-Public Use
  Company Number: US-GLAXOSMITHKLINE-A1069310A

PATIENT
  Age: 57 Year
  Sex: Male
  Weight: 70 kg

DRUGS (7)
  1. OFATUMUMAB [Suspect]
     Indication: CHRONIC LYMPHOCYTIC LEUKAEMIA
     Dosage: 2000U SEE DOSAGE TEXT
     Route: 042
     Dates: start: 20130822, end: 20131205
  2. IBRUTINIB [Concomitant]
  3. ACYCLOVIR [Concomitant]
  4. ALLOPURINOL [Concomitant]
  5. FOLIC ACID [Concomitant]
  6. PENTAMIDINE [Concomitant]
  7. OMEPRAZOLE [Concomitant]

REACTIONS (16)
  - Bronchopulmonary aspergillosis [Fatal]
  - Lung infiltration [Unknown]
  - Hypoxia [Unknown]
  - General physical health deterioration [Unknown]
  - Immunodeficiency [Unknown]
  - Productive cough [Not Recovered/Not Resolved]
  - Dyspnoea exertional [Unknown]
  - Cough [Not Recovered/Not Resolved]
  - Malaise [Unknown]
  - Diarrhoea [Unknown]
  - Dizziness [Unknown]
  - Asthenia [Unknown]
  - Chromaturia [Unknown]
  - Interstitial lung disease [Unknown]
  - Lymphadenopathy [Unknown]
  - Disease progression [Unknown]
